FAERS Safety Report 16711407 (Version 1)
Quarter: 2019Q3

REPORT INFORMATION
  Report Type: Spontaneous
  Country: US (occurrence: US)
  Receive Date: 20190816
  Receipt Date: 20190816
  Transmission Date: 20191004
  Serious: No
  Sender: FDA-Public Use
  Company Number: US-SA-2019SA220013

PATIENT
  Age: 73 Year
  Sex: Female

DRUGS (1)
  1. ZANTAC 150 (RANITIDINE HYDROCHLORIDE) [Suspect]
     Active Substance: RANITIDINE HYDROCHLORIDE
     Dosage: 1 TABLET EARLIER IN THE DAY AND A SECOND TABLET IN THE EVENING
     Dates: start: 20190806

REACTIONS (2)
  - Product label issue [Unknown]
  - Pruritus [Unknown]
